FAERS Safety Report 21421055 (Version 1)
Quarter: 2022Q4

REPORT INFORMATION
  Report Type: Spontaneous
  Country: DE (occurrence: DE)
  Receive Date: 20221007
  Receipt Date: 20221007
  Transmission Date: 20230113
  Serious: Yes (Other)
  Sender: FDA-Public Use
  Company Number: DE-EMA-DD-20191203-shukla_v-112242

PATIENT
  Age: 77 Year
  Sex: Female
  Weight: 85 kg

DRUGS (5)
  1. DOCETAXEL [Suspect]
     Active Substance: DOCETAXEL
     Indication: Lung adenocarcinoma
     Dosage: 75 MILLIGRAM/SQ. METER, ONCE A DAY(FORMULATION: LIQUID; TOTAL DAILY DOSE AT ONSET (DOSE, UNIT): 75MG
     Route: 042
     Dates: start: 20190704
  2. NINTEDANIB [Suspect]
     Active Substance: NINTEDANIB
     Indication: Lung adenocarcinoma
     Dosage: 150 MILLIGRAM
     Route: 065
     Dates: start: 20200327
  3. NINTEDANIB [Suspect]
     Active Substance: NINTEDANIB
     Dosage: 200 MILLIGRAM, ONCE A DAY
     Dates: start: 20190705, end: 20210111
  4. NINTEDANIB [Suspect]
     Active Substance: NINTEDANIB
     Dosage: 200 MILLIGRAM
     Dates: start: 20200311
  5. NINTEDANIB [Suspect]
     Active Substance: NINTEDANIB
     Dosage: 150 MILLIGRAM

REACTIONS (6)
  - Dermatitis exfoliative generalised [Recovered/Resolved]
  - Vomiting [Recovered/Resolved]
  - Hypertension [Recovered/Resolved]
  - Face oedema [Recovered/Resolved]
  - Diarrhoea [Recovered/Resolved]
  - Nausea [Recovered/Resolved]

NARRATIVE: CASE EVENT DATE: 20190704
